FAERS Safety Report 7004955-0 (Version None)
Quarter: 2010Q3

REPORT INFORMATION
  Report Type: 
  Country: None (occurrence: None)
  Receive Date: 20100921
  Receipt Date: 20100916
  Transmission Date: 20110219
  Serious: Yes (Life-Threatening, Hospitalization)
  Sender: FDA-Public Use
  Company Number: US-BRISTOL-MYERS SQUIBB COMPANY-15291594

PATIENT
  Age: 75 Year
  Sex: Female

DRUGS (26)
  1. CARBOPLATIN [Suspect]
     Indication: CARCINOID TUMOUR
     Route: 042
     Dates: start: 20080327, end: 20080508
  2. PACLITAXEL [Suspect]
     Indication: CARCINOID TUMOUR
     Route: 042
     Dates: start: 20080327, end: 20080508
  3. TESSALON [Concomitant]
     Dosage: 600MG
     Route: 048
  4. LEVOTHYROXINE SODIUM [Concomitant]
     Route: 048
     Dates: start: 19670101
  5. IPRATROPIUM BROMIDE [Concomitant]
     Indication: COUGH
     Route: 055
     Dates: start: 20070901
  6. AMITRIPTYLINE HCL [Concomitant]
     Indication: COUGH
     Route: 048
     Dates: start: 20071201
  7. ASTELIN [Concomitant]
     Indication: HYPERSENSITIVITY
     Dosage: 1 DF:2 UNIT NOS
     Route: 045
     Dates: start: 20071201
  8. BENZONATATE [Concomitant]
     Indication: COUGH
     Dosage: 400MG
     Route: 048
     Dates: start: 20071201
  9. FEMTRAN [Concomitant]
     Indication: HORMONE THERAPY
     Route: 048
     Dates: start: 20071201
  10. FLONASE [Concomitant]
     Dosage: 1 DF:4 UNIT NOS
     Route: 045
     Dates: start: 20071201
  11. MULTI-VITAMIN [Concomitant]
     Route: 048
     Dates: start: 20071201
  12. PREVACID [Concomitant]
     Indication: COUGH
     Route: 048
     Dates: start: 20071201
  13. SIMVASTATIN [Concomitant]
     Indication: BLOOD CHOLESTEROL ABNORMAL
     Route: 048
     Dates: start: 20071201
  14. XOPENEX [Concomitant]
     Indication: COUGH
     Route: 055
     Dates: start: 20071201
  15. ZYRTEC [Concomitant]
     Indication: COUGH
     Route: 048
     Dates: start: 20071201
  16. ZYRTEC [Concomitant]
     Indication: HYPERSENSITIVITY
     Route: 048
     Dates: start: 20071201
  17. NORITATE [Concomitant]
     Indication: ROSACEA
     Route: 061
     Dates: start: 20071213
  18. SYMBICORT [Concomitant]
     Indication: COUGH
     Dosage: 1 DF: 80/4.5 TWO PUFFS
     Route: 055
     Dates: start: 20071219
  19. SYMBICORT [Concomitant]
     Indication: HYPERSENSITIVITY
     Dosage: 1 DF: 80/4.5 TWO PUFFS
     Route: 055
     Dates: start: 20071219
  20. TYLENOL [Concomitant]
     Route: 048
     Dates: start: 20080401
  21. SYNTHROID [Concomitant]
     Route: 048
  22. ELAVIL [Concomitant]
  23. ZYRTEC [Concomitant]
     Route: 048
  24. PROTONIX [Concomitant]
     Route: 048
  25. ATROVENT [Concomitant]
  26. AMICAR [Concomitant]
     Dosage: 4000MG
     Route: 048

REACTIONS (1)
  - DISSEMINATED INTRAVASCULAR COAGULATION [None]
